FAERS Safety Report 4541172-8 (Version None)
Quarter: 2004Q4

REPORT INFORMATION
  Report Type: 
  Country: None (occurrence: None)
  Receive Date: 20041227
  Receipt Date: 20041214
  Transmission Date: 20050328
  Serious: Yes (Hospitalization, Disabling)
  Sender: FDA-Public Use
  Company Number: HQWYE963614DEC04

PATIENT
  Age: 20 Year
  Sex: Female

DRUGS (2)
  1. TRIONETTA (LEVONORGESTREL/ETHINYL ESTRADIOL/INERT, TABLET) [Suspect]
     Indication: ORAL CONTRACEPTION
     Dosage: 1 TABLET 1X PER 1 DAY
     Route: 048
     Dates: end: 20011005
  2. MERCILON (DESOGESTREL/ETHINYLESTRADIOL) [Suspect]
     Indication: ORAL CONTRACEPTION
     Dosage: 1 TABLET 1X PER 1 DAY
     Route: 048
     Dates: end: 20011005

REACTIONS (4)
  - ANXIETY [None]
  - FEAR OF DISEASE [None]
  - PANIC ATTACK [None]
  - PULMONARY EMBOLISM [None]
